FAERS Safety Report 15802008 (Version 1)
Quarter: 2019Q1

REPORT INFORMATION
  Report Type: Spontaneous
  Country: US (occurrence: US)
  Receive Date: 20190109
  Receipt Date: 20190109
  Transmission Date: 20190417
  Serious: No
  Sender: FDA-Public Use
  Company Number: US-BAYER-2019-002361

PATIENT
  Age: 52 Year
  Sex: Male
  Weight: 116 kg

DRUGS (3)
  1. MIRALAX [Suspect]
     Active Substance: POLYETHYLENE GLYCOL 3350
     Indication: PAIN
     Dosage: 1 CAPFUL DAILY DOSE
     Route: 048
     Dates: start: 20180102
  2. MIRALAX [Suspect]
     Active Substance: POLYETHYLENE GLYCOL 3350
     Indication: ANAL FISSURE
     Dosage: 1 CAPFUL DAILY DOSE
     Route: 048
     Dates: end: 20180101
  3. MIRALAX [Suspect]
     Active Substance: POLYETHYLENE GLYCOL 3350
     Indication: ANAL FISSURE
     Dosage: UNK
     Dates: start: 201604, end: 2018

REACTIONS (4)
  - Product use issue [None]
  - Dysgeusia [Unknown]
  - Off label use [Unknown]
  - Product use in unapproved indication [None]

NARRATIVE: CASE EVENT DATE: 2017
